FAERS Safety Report 13746016 (Version 1)
Quarter: 2017Q3

REPORT INFORMATION
  Report Type: Spontaneous
  Country: US (occurrence: US)
  Receive Date: 20170712
  Receipt Date: 20170712
  Transmission Date: 20171127
  Serious: Yes (Hospitalization)
  Sender: FDA-Public Use
  Company Number: None

PATIENT
  Age: 63 Year
  Sex: Male

DRUGS (9)
  1. SPIRIVA [Concomitant]
     Active Substance: TIOTROPIUM BROMIDE MONOHYDRATE
  2. CLONAZEPAM. [Concomitant]
     Active Substance: CLONAZEPAM
  3. KLONOPIN [Concomitant]
     Active Substance: CLONAZEPAM
  4. POTASSIUM [Concomitant]
     Active Substance: POTASSIUM
  5. SINGULAIR [Concomitant]
     Active Substance: MONTELUKAST SODIUM
  6. TRAMADOL. [Concomitant]
     Active Substance: TRAMADOL
  7. ENALAPRIL [Concomitant]
     Active Substance: ENALAPRIL
  8. GLEEVEC [Suspect]
     Active Substance: IMATINIB MESYLATE
     Indication: CHRONIC MYELOID LEUKAEMIA
     Dosage: 1 TABLET DAILY ORAL
     Route: 048
     Dates: start: 20090212
  9. FLUTICASONE. [Concomitant]
     Active Substance: FLUTICASONE

REACTIONS (1)
  - Therapy cessation [None]
